FAERS Safety Report 15374681 (Version 1)
Quarter: 2018Q4

REPORT INFORMATION
  Report Type: Spontaneous
  Country: ZA (occurrence: ZA)
  Receive Date: 20180912
  Receipt Date: 20180912
  Transmission Date: 20190204
  Serious: Yes (Other)
  Sender: FDA-Public Use
  Company Number: ZA-PFIZER INC-2018365546

PATIENT
  Age: 90 Year
  Sex: Female

DRUGS (5)
  1. ASPAVOR [Suspect]
     Active Substance: ATORVASTATIN
     Dosage: UNK
  2. PLAGROL [Suspect]
     Active Substance: CLOPIDOGREL BISULFATE
     Dosage: UNK
  3. LACSON [Suspect]
     Active Substance: LACTULOSE
     Dosage: UNK
  4. MYLAN PANTOPRAZOLE [Suspect]
     Active Substance: PANTOPRAZOLE SODIUM
     Dosage: UNK
  5. UNAT [TORASEMIDE SODIUM] [Suspect]
     Active Substance: TORSEMIDE
     Dosage: UNK

REACTIONS (2)
  - Deafness [Unknown]
  - Blindness [Unknown]
